FAERS Safety Report 8465628-0 (Version None)
Quarter: 2012Q2

REPORT INFORMATION
  Report Type: 
  Country: None (occurrence: None)
  Receive Date: 20120626
  Receipt Date: 20120618
  Transmission Date: 20120825
  Serious: Yes (Other)
  Sender: FDA-Public Use
  Company Number: US-BAYER-2012-060881

PATIENT
  Age: 28 Year
  Sex: Female
  Weight: 78.005 kg

DRUGS (7)
  1. FLONASE [Concomitant]
     Indication: RHINITIS SEASONAL
     Dosage: 50 MCG 2 SPRAY EACH NOSTRIL QD
     Route: 045
     Dates: start: 20090318, end: 20090502
  2. FISH OIL [Concomitant]
     Dosage: 1, BID
     Dates: start: 20090318
  3. CIPROFLOXACIN HCL [Concomitant]
     Dosage: 500 MG, 1 TAB
     Dates: start: 20090318
  4. SINGULAIR [Concomitant]
     Indication: RHINITIS SEASONAL
     Dosage: 10 MG, QD
     Dates: start: 20090422
  5. YAZ [Suspect]
     Dosage: UNK
  6. ALLEGRA [Concomitant]
     Indication: RHINITIS SEASONAL
     Dosage: 180 MG, 1 TAB QD, PRN
     Dates: start: 20090318
  7. XYZAL [Concomitant]
     Indication: RHINITIS SEASONAL
     Dosage: UNK
     Dates: start: 20090422

REACTIONS (1)
  - THROMBOPHLEBITIS SUPERFICIAL [None]
